FAERS Safety Report 5648167-1 (Version None)
Quarter: 2008Q1

REPORT INFORMATION
  Report Type: 
  Country: None (occurrence: None)
  Receive Date: 20080304
  Receipt Date: 20080221
  Transmission Date: 20080703
  Serious: Yes (Hospitalization)
  Sender: FDA-Public Use
  Company Number: FR-JNJFOC-20080300164

PATIENT
  Sex: Female

DRUGS (9)
  1. ULTRACET [Suspect]
     Indication: PAIN
     Route: 048
  2. FLUCONAZOLE [Interacting]
     Indication: CANDIDIASIS
     Route: 065
  3. PREVISCAN [Interacting]
     Indication: HYPERVISCOSITY SYNDROME
     Route: 048
  4. HYDREA [Concomitant]
     Route: 065
  5. DIFFU K [Concomitant]
     Route: 065
  6. SEREVENT [Concomitant]
     Route: 065
  7. PULMICORT [Concomitant]
     Route: 064
  8. LORMETAZEPAM [Concomitant]
     Route: 065
  9. GINKOR FORT [Concomitant]
     Route: 065

REACTIONS (3)
  - DRUG INTERACTION [None]
  - RECTAL HAEMORRHAGE [None]
  - SHOCK HAEMORRHAGIC [None]
